FAERS Safety Report 10561274 (Version 1)
Quarter: 2014Q4

REPORT INFORMATION
  Report Type: Spontaneous
  Country: TR (occurrence: TR)
  Receive Date: 20141103
  Receipt Date: 20141103
  Transmission Date: 20150529
  Serious: Yes (Death)
  Sender: FDA-Public Use
  Company Number: TR-MYLANLABS-2014M1009304

PATIENT

DRUGS (9)
  1. AMIODARONE [Suspect]
     Active Substance: AMIODARONE
     Dosage: PARENTERAL INFUSION; LOADING DOSE OF 300MG/30MINS; THEN MAINTENANCE DOSE OF 1200MG/24H
     Route: 051
  2. AMIODARONE [Suspect]
     Active Substance: AMIODARONE
     Dosage: 600 MG, QD
     Route: 048
  3. METOPROLOL [Concomitant]
     Active Substance: METOPROLOL
     Dosage: 5 MG, QD
     Route: 065
  4. WARFARIN [Concomitant]
     Active Substance: WARFARIN
     Route: 065
  5. DIGOXIN. [Concomitant]
     Active Substance: DIGOXIN
     Dosage: 0.25 MG, QD
     Route: 065
  6. AMIODARONE [Suspect]
     Active Substance: AMIODARONE
     Dosage: PARENTERAL INFUSION; MAINTENANCE DOSE OF 1200MG/24H
     Route: 051
  7. AMIODARONE [Suspect]
     Active Substance: AMIODARONE
     Indication: ATRIAL FIBRILLATION
     Dosage: LOADING DOSE OF 300MG/30MINS; THEN MAINTENANCE DOSE OF 1200MG/24H
     Route: 041
  8. AMIODARONE [Suspect]
     Active Substance: AMIODARONE
     Dosage: MAINTENANCE DOSE OF 1200MG/24H
     Route: 041
  9. FUROSEMIDE. [Concomitant]
     Active Substance: FUROSEMIDE
     Dosage: 80 MG, QW
     Route: 065

REACTIONS (2)
  - Multi-organ failure [Fatal]
  - Hepatitis toxic [Fatal]
